FAERS Safety Report 7703518-9 (Version None)
Quarter: 2011Q3

REPORT INFORMATION
  Report Type: 
  Country: None (occurrence: None)
  Receive Date: 20110823
  Receipt Date: 20110810
  Transmission Date: 20111222
  Serious: No
  Sender: FDA-Public Use
  Company Number: US-B.I. PHARMACEUTICALS,INC./RIDGEFIELD-2011-BP-19703BP

PATIENT
  Age: 66 Year
  Sex: Female

DRUGS (8)
  1. GLAUCOMA EYE GTTS [Concomitant]
     Indication: GLAUCOMA
  2. SIMAVASTATIN [Concomitant]
     Indication: BLOOD CHOLESTEROL INCREASED
     Dosage: 20 MG
     Route: 048
  3. OXYBUTYNIN [Concomitant]
     Indication: BLADDER SPASM
     Dosage: 5 MG
     Route: 048
  4. PRADAXA [Suspect]
     Indication: ATRIAL FIBRILLATION
     Dosage: 300 MG
     Route: 048
     Dates: start: 20110501
  5. LOSARTAN [Concomitant]
     Indication: HYPERTENSION
     Dosage: 100 MG
     Route: 048
  6. HUMALOG [Concomitant]
     Indication: DIABETES MELLITUS
     Dosage: 80 U
     Route: 058
  7. DILTIAZEM [Concomitant]
     Indication: HYPERTENSION
     Dosage: 240 MG
     Route: 048
  8. METFORMIN HCL [Concomitant]
     Indication: DIABETES MELLITUS
     Dosage: 2000 MG
     Route: 048

REACTIONS (4)
  - DYSPEPSIA [None]
  - VOMITING [None]
  - NAUSEA [None]
  - DIARRHOEA [None]
